FAERS Safety Report 9617805 (Version 1)
Quarter: 2013Q4

REPORT INFORMATION
  Report Type: Report from Study
  Country: GB (occurrence: GB)
  Receive Date: 20131011
  Receipt Date: 20131011
  Transmission Date: 20140711
  Serious: Yes (Hospitalization)
  Sender: FDA-Public Use
  Company Number: GB-ROCHE-1285721

PATIENT
  Sex: Female
  Weight: 66.2 kg

DRUGS (8)
  1. BEVACIZUMAB [Suspect]
     Indication: COLON CANCER
     Route: 042
     Dates: start: 20130719
  2. PREDNISOLON [Concomitant]
     Route: 048
  3. CAPECITABINE [Concomitant]
     Route: 048
     Dates: start: 20130718
  4. SPIRONOLACTONE [Concomitant]
     Route: 048
  5. CO-CODAMOL [Concomitant]
     Dosage: 30/500
     Route: 048
  6. RANITIDINE [Concomitant]
     Indication: DYSPEPSIA
     Route: 048
  7. ALENDRONIC ACID [Concomitant]
     Indication: OSTEOPOROSIS
     Route: 048
  8. CALCICHEW D3 FORTE [Concomitant]
     Indication: OSTEOPOROSIS
     Route: 048

REACTIONS (5)
  - Vomiting [Recovered/Resolved]
  - Hyponatraemia [Unknown]
  - Hepatic failure [Unknown]
  - Metastases to liver [Unknown]
  - Blood bilirubin increased [Unknown]
